FAERS Safety Report 4526213-6 (Version None)
Quarter: 2004Q4

REPORT INFORMATION
  Report Type: 
  Country: None (occurrence: None)
  Receive Date: 20041210
  Receipt Date: 20041201
  Transmission Date: 20050328
  Serious: Yes (Hospitalization, Other)
  Sender: FDA-Public Use
  Company Number: 167-20785-04120147

PATIENT
  Age: 70 Year
  Sex: Male

DRUGS (17)
  1. THALIDOMIDE - PHARMION (THALIDOMIDE) (50 MILLIGRAM, CAPSULES) [Suspect]
     Indication: SMALL CELL LUNG CANCER STAGE UNSPECIFIED
     Dosage: 100 MG, QD, ORAL
     Route: 048
     Dates: start: 20040903, end: 20041123
  2. CARBOPLATIN [Suspect]
     Indication: SMALL CELL LUNG CANCER STAGE UNSPECIFIED
     Dosage: 375 MG, INTRAVENOUS
     Route: 042
     Dates: start: 20041112, end: 20041112
  3. ETOPOSIDE [Suspect]
     Indication: SMALL CELL LUNG CANCER STAGE UNSPECIFIED
     Dosage: 175 MG, INTRAVENOUS
     Route: 042
     Dates: start: 20041112, end: 20041112
  4. PREDNISONE [Concomitant]
  5. RISEDRONATE (RISEDRONATE SODIUM) [Concomitant]
  6. CALCEOS (LEKOVIT CA) [Concomitant]
  7. LANSOPRAZOLE [Concomitant]
  8. BECLOMETHASONE (BECLOMETHASONE) [Concomitant]
  9. SALBUTAMOL (SALBUTAMOL) [Concomitant]
  10. CELECOXIB (CELECOXIB) [Concomitant]
  11. ACETYLSALICYLIC ACID SRT [Concomitant]
  12. DOMPERIDONE (DOMPERIDONE) [Concomitant]
  13. CIPROFLOXACIN [Concomitant]
  14. FLUCONAZOLE [Concomitant]
  15. NITRAZEPAM [Concomitant]
  16. DEXAMETHASONE [Concomitant]
  17. MIXTARD (INITARD) [Concomitant]

REACTIONS (10)
  - BLOOD PRESSURE DIASTOLIC DECREASED [None]
  - CARDIAC ANEURYSM [None]
  - HAEMOGLOBIN DECREASED [None]
  - MYOCARDIAL INFARCTION [None]
  - MYOCARDIAL ISCHAEMIA [None]
  - NEUTROPENIC SEPSIS [None]
  - PLEURAL EFFUSION [None]
  - PULMONARY EMBOLISM [None]
  - SEPSIS [None]
  - THROMBOSIS [None]
